FAERS Safety Report 8587652-X (Version None)
Quarter: 2012Q3

REPORT INFORMATION
  Report Type: 
  Country: None (occurrence: None)
  Receive Date: 20120812
  Receipt Date: 20120731
  Transmission Date: 20120928
  Serious: No
  Sender: FDA-Public Use
  Company Number: US-009507513-1107USA01973

PATIENT

DRUGS (4)
  1. PILOCARPINE HYDROCHLORIDE [Suspect]
     Dosage: UNK
     Dates: start: 19770101, end: 19950101
  2. TRUSOPT [Suspect]
     Indication: GLAUCOMA
     Dosage: UNK
     Route: 047
     Dates: start: 19951101
  3. TIMOPTIC [Concomitant]
  4. TRUSOPT [Suspect]
     Route: 048

REACTIONS (3)
  - INTRAOCULAR PRESSURE INCREASED [None]
  - CATARACT [None]
  - VISION BLURRED [None]
